FAERS Safety Report 6798844-4 (Version None)
Quarter: 2010Q2

REPORT INFORMATION
  Report Type: 
  Country: None (occurrence: None)
  Receive Date: 20100623
  Receipt Date: 20100610
  Transmission Date: 20101027
  Serious: Yes (Other)
  Sender: FDA-Public Use
  Company Number: FR-1182196

PATIENT
  Sex: Male

DRUGS (1)
  1. CILOXAN [Suspect]
     Indication: OCULAR DISCOMFORT
     Dosage: OPHTHALMIC
     Route: 047
     Dates: start: 20100529, end: 20100601

REACTIONS (6)
  - CORNEAL OPACITY [None]
  - DRUG TOXICITY [None]
  - INFLAMMATION OF LACRIMAL PASSAGE [None]
  - NO THERAPEUTIC RESPONSE [None]
  - OCULAR HYPERAEMIA [None]
  - VISION BLURRED [None]
